FAERS Safety Report 23711704 (Version 1)
Quarter: 2024Q2

REPORT INFORMATION
  Report Type: Spontaneous
  Country: US (occurrence: None)
  Receive Date: 20240405
  Receipt Date: 20240405
  Transmission Date: 20240716
  Serious: No
  Sender: FDA-Public Use
  Company Number: US-ARIS GLOBAL-AXS202306-000939

PATIENT
  Age: 58 Year
  Sex: Female

DRUGS (2)
  1. SUNOSI [Suspect]
     Active Substance: SOLRIAMFETOL
     Indication: Narcolepsy
     Route: 048
     Dates: start: 202209
  2. SUNOSI [Suspect]
     Active Substance: SOLRIAMFETOL
     Indication: Somnolence

REACTIONS (1)
  - Drug screen positive [Unknown]
